FAERS Safety Report 5384205-1 (Version None)
Quarter: 2007Q3

REPORT INFORMATION
  Report Type: 
  Country: None (occurrence: None)
  Receive Date: 20070711
  Receipt Date: 20070704
  Transmission Date: 20080115
  Serious: Yes (Life-Threatening, Hospitalization)
  Sender: FDA-Public Use
  Company Number: B0477910A

PATIENT
  Sex: Male
  Weight: 80 kg

DRUGS (2)
  1. DUTASTERIDE [Suspect]
     Indication: BENIGN PROSTATIC HYPERPLASIA
     Dosage: .5MG PER DAY
     Route: 048
     Dates: start: 20040605
  2. ZELNORM [Concomitant]
     Dosage: 6MG TWICE PER DAY
     Dates: start: 20070301, end: 20070331

REACTIONS (1)
  - COLON CANCER [None]
